FAERS Safety Report 23633798 (Version 1)
Quarter: 2024Q1

REPORT INFORMATION
  Report Type: Spontaneous
  Country: AU (occurrence: None)
  Receive Date: 20240314
  Receipt Date: 20240314
  Transmission Date: 20240409
  Serious: Yes (Hospitalization, Other)
  Sender: FDA-Public Use
  Company Number: 2024A061361

PATIENT
  Age: 67 Year
  Sex: Female

DRUGS (2)
  1. ROSUVASTATIN CALCIUM [Interacting]
     Active Substance: ROSUVASTATIN CALCIUM
     Indication: Product used for unknown indication
     Dates: start: 20230724
  2. WARFARIN SODIUM [Interacting]
     Active Substance: WARFARIN SODIUM

REACTIONS (9)
  - Drug interaction [Unknown]
  - Anticoagulation drug level above therapeutic [Recovering/Resolving]
  - Electrolyte imbalance [Unknown]
  - Acute kidney injury [Unknown]
  - Haematemesis [Unknown]
  - Hypotension [Unknown]
  - Liver function test abnormal [Unknown]
  - Melaena [Unknown]
  - Tachycardia [Unknown]

NARRATIVE: CASE EVENT DATE: 20230807
